FAERS Safety Report 9449044 (Version 2)
Quarter: 2013Q4

REPORT INFORMATION
  Report Type: Spontaneous
  Country: IT (occurrence: IT)
  Receive Date: 20130808
  Receipt Date: 20131118
  Transmission Date: 20140711
  Serious: Yes (Other)
  Sender: FDA-Public Use
  Company Number: IT-BRISTOL-MYERS SQUIBB COMPANY-19177070

PATIENT
  Age: 57 Year
  Sex: Female

DRUGS (7)
  1. ERBITUX SOLN FOR INF [Suspect]
     Indication: COLORECTAL CANCER
     Route: 042
     Dates: start: 20130102
  2. CETRIZINE [Concomitant]
  3. FUROSEMIDE [Concomitant]
  4. NORVASC [Concomitant]
  5. VASORETIC [Concomitant]
  6. SOLDESAM [Concomitant]
  7. ZANTAC [Concomitant]

REACTIONS (2)
  - Myotonic dystrophy [Recovering/Resolving]
  - Papule [Recovering/Resolving]
